FAERS Safety Report 25793954 (Version 1)
Quarter: 2025Q3

REPORT INFORMATION
  Report Type: Spontaneous
  Country: US (occurrence: US)
  Receive Date: 20250912
  Receipt Date: 20250912
  Transmission Date: 20251021
  Serious: No
  Sender: ROCHE
  Company Number: US-ROCHE-10000381701

PATIENT
  Age: 58 Year
  Sex: Male
  Weight: 107.05 kg

DRUGS (9)
  1. XOLAIR [Suspect]
     Active Substance: OMALIZUMAB
     Indication: Asthma
     Dosage: 300MG AUTOINJECTOR WITH 75MG AUTOINJECTOR
     Route: 030
  2. XOLAIR [Suspect]
     Active Substance: OMALIZUMAB
     Dosage: 300MG AUTOINJECTOR WITH 75MG AUTOINJECTOR
     Route: 030
  3. TRELEGY ELLIPTA [Suspect]
     Active Substance: FLUTICASONE FUROATE\UMECLIDINIUM BROMIDE\VILANTEROL TRIFENATATE
     Indication: Asthma
     Dosage: 1 INHALATION, IN THE MORNING
     Route: 055
  4. IRBESARTAN [Concomitant]
     Active Substance: IRBESARTAN
     Indication: Blood pressure measurement
     Route: 048
     Dates: start: 201301
  5. METOPROLOL [Concomitant]
     Active Substance: METOPROLOL
     Indication: Blood pressure measurement
     Route: 048
     Dates: start: 201301
  6. XARELTO [Concomitant]
     Active Substance: RIVAROXABAN
     Route: 048
     Dates: start: 201301
  7. FINASTERIDE [Concomitant]
     Active Substance: FINASTERIDE
     Route: 048
  8. LATANOPROST [Concomitant]
     Active Substance: LATANOPROST
     Indication: Glaucoma
     Dosage: BOTH EYES, AT NIGHT BEFORE BED
     Route: 047
     Dates: start: 202407
  9. BRIMONIDINE [Concomitant]
     Active Substance: BRIMONIDINE TARTRATE
     Indication: Glaucoma
     Route: 047
     Dates: start: 202411

REACTIONS (6)
  - Off label use [Unknown]
  - Aphonia [Not Recovered/Not Resolved]
  - Atrial fibrillation [Not Recovered/Not Resolved]
  - Hypertension [Not Recovered/Not Resolved]
  - Glaucoma [Not Recovered/Not Resolved]
  - Product dose omission issue [Not Recovered/Not Resolved]

NARRATIVE: CASE EVENT DATE: 20120101
